FAERS Safety Report 4463679-4 (Version None)
Quarter: 2004Q3

REPORT INFORMATION
  Report Type: 
  Country: None (occurrence: None)
  Receive Date: 20040929
  Receipt Date: 20040909
  Transmission Date: 20050211
  Serious: Yes (Other)
  Sender: FDA-Public Use
  Company Number: US_0409105370

PATIENT
  Age: 69 Year
  Sex: Female

DRUGS (5)
  1. GEMCITABINE HYDROCHLORIDE        (GEMCITABINE) [Suspect]
     Indication: LUNG ADENOCARCINOMA STAGE IV
     Dosage: 1000 MG/M2 OTHER
  2. PACLITAXEL [Concomitant]
  3. CARBOPLATIN [Concomitant]
  4. CORTICOSTERIOD NOS [Concomitant]
  5. ANTIHISTAMINE [Concomitant]

REACTIONS (5)
  - CRYPTOGENIC ORGANIZING PNEUMONIA [None]
  - HYPOXIA [None]
  - LYMPHOCYTE PERCENTAGE INCREASED [None]
  - NEUTROPHIL PERCENTAGE DECREASED [None]
  - THERAPEUTIC RESPONSE DECREASED [None]
